FAERS Safety Report 6595982-6 (Version None)
Quarter: 2010Q1

REPORT INFORMATION
  Report Type: 
  Country: None (occurrence: None)
  Receive Date: 20100223
  Receipt Date: 20100211
  Transmission Date: 20100710
  Serious: Yes (Other)
  Sender: FDA-Public Use
  Company Number: PHEH2009US16847

PATIENT
  Sex: Female
  Weight: 81 kg

DRUGS (3)
  1. EXJADE [Suspect]
     Indication: HAEMOSIDEROSIS
     Dosage: 500 MG DAILY
     Route: 048
  2. EXJADE [Suspect]
     Dosage: ALTERNATING 1 WITH 2 TABLETS PER DAY
     Route: 048
     Dates: end: 20090820
  3. EXJADE [Suspect]
     Dosage: UNK
     Dates: start: 20090925

REACTIONS (3)
  - BLINDNESS [None]
  - DEAFNESS [None]
  - VISUAL ACUITY REDUCED [None]
